FAERS Safety Report 8840825 (Version 3)
Quarter: 2013Q3

REPORT INFORMATION
  Report Type: Spontaneous
  Country: DK (occurrence: DK)
  Receive Date: 20121015
  Receipt Date: 20130903
  Transmission Date: 20140515
  Serious: Yes (Life-Threatening, Hospitalization)
  Sender: FDA-Public Use
  Company Number: DK-BAYER-2011-093037

PATIENT
  Age: 16 Year
  Sex: Female
  Weight: 79 kg

DRUGS (3)
  1. YAZ [Suspect]
     Indication: BLOOD TESTOSTERONE INCREASED
     Dosage: UNK
     Route: 048
     Dates: start: 20110715, end: 20110927
  2. YAZ [Suspect]
     Indication: HAIR GROWTH ABNORMAL
  3. YAZ [Suspect]
     Indication: HIRSUTISM

REACTIONS (14)
  - Deep vein thrombosis [Recovered/Resolved with Sequelae]
  - Pulmonary embolism [Recovered/Resolved]
  - Lung infection [Recovered/Resolved]
  - Back pain [Recovered/Resolved]
  - Limb discomfort [Not Recovered/Not Resolved]
  - Gait disturbance [Not Recovered/Not Resolved]
  - Dyspnoea [Recovered/Resolved]
  - Local swelling [Recovering/Resolving]
  - Swelling [Recovered/Resolved]
  - Sensory disturbance [Recovered/Resolved]
  - Skin discolouration [Recovered/Resolved]
  - Pelvic venous thrombosis [Unknown]
  - Pain in extremity [Not Recovered/Not Resolved]
  - Dysstasia [Not Recovered/Not Resolved]
